FAERS Safety Report 20045424 (Version 1)
Quarter: 2021Q4

REPORT INFORMATION
  Report Type: Spontaneous
  Country: BR (occurrence: BR)
  Receive Date: 20211108
  Receipt Date: 20211108
  Transmission Date: 20220303
  Serious: Yes (Other)
  Sender: FDA-Public Use
  Company Number: BR-PFIZER INC-202101487270

PATIENT
  Age: 85 Year
  Sex: Female

DRUGS (7)
  1. LYRICA [Suspect]
     Active Substance: PREGABALIN
     Indication: Pain in extremity
     Dosage: 75 MG
     Dates: start: 202108
  2. XALATAN [Concomitant]
     Active Substance: LATANOPROST
     Indication: Macular degeneration
     Dosage: UNK
     Dates: start: 2015
  3. XALATAN [Concomitant]
     Active Substance: LATANOPROST
     Indication: Cataract
  4. XALATAN [Concomitant]
     Active Substance: LATANOPROST
     Indication: Glaucoma
  5. LATANOPROST\TIMOLOL MALEATE [Concomitant]
     Active Substance: LATANOPROST\TIMOLOL MALEATE
     Indication: Glaucoma
     Dosage: UNK
     Dates: start: 2015
  6. LATANOPROST\TIMOLOL MALEATE [Concomitant]
     Active Substance: LATANOPROST\TIMOLOL MALEATE
     Indication: Cataract
  7. LATANOPROST\TIMOLOL MALEATE [Concomitant]
     Active Substance: LATANOPROST\TIMOLOL MALEATE
     Indication: Age-related macular degeneration

REACTIONS (1)
  - Parkinson^s disease [Unknown]
